FAERS Safety Report 5149317-6 (Version None)
Quarter: 2006Q4

REPORT INFORMATION
  Report Type: 
  Country: None (occurrence: None)
  Receive Date: 20061113
  Receipt Date: 20061106
  Transmission Date: 20070319
  Serious: Yes (Other)
  Sender: FDA-Public Use
  Company Number: NL-GLAXOSMITHKLINE-B0446203A

PATIENT
  Age: 58 Year
  Sex: Female
  Weight: 92 kg

DRUGS (3)
  1. FLUTICASONE PROPIONATE + SALMETEROL XINAFOATE [Suspect]
     Indication: BRONCHITIS CHRONIC
     Dosage: 2ACTU PER DAY
     Route: 055
     Dates: start: 20030715
  2. SINGULAIR [Suspect]
     Dosage: 10MG PER DAY
     Dates: start: 20050515, end: 20060715
  3. TELFAST [Concomitant]
     Dosage: 120MG PER DAY

REACTIONS (4)
  - IMMUNE SYSTEM DISORDER [None]
  - PAIN [None]
  - PAIN IN EXTREMITY [None]
  - PARAESTHESIA [None]
